FAERS Safety Report 19996748 (Version 1)
Quarter: 2021Q4

REPORT INFORMATION
  Report Type: Report from Study
  Country: CA (occurrence: CA)
  Receive Date: 20211025
  Receipt Date: 20211025
  Transmission Date: 20220303
  Serious: Yes (Hospitalization, Other)
  Sender: FDA-Public Use
  Company Number: CA-HLS-202108633

PATIENT
  Sex: Male

DRUGS (5)
  1. CLOZARIL [Suspect]
     Active Substance: CLOZAPINE
     Indication: Product used for unknown indication
     Route: 048
     Dates: start: 20210920
  2. SEROQUEL [Concomitant]
     Active Substance: QUETIAPINE FUMARATE
     Dosage: THREE TIMES A DAY AS NEEDED
     Route: 048
  3. OLANZAPINE [Concomitant]
     Active Substance: OLANZAPINE
     Dosage: AT BEDTIME
     Route: 065
  4. HALOPERIDOL [Concomitant]
     Active Substance: HALOPERIDOL
     Dosage: TWICE DAILY
     Route: 048
  5. HALOPERIDOL [Concomitant]
     Active Substance: HALOPERIDOL
     Route: 030

REACTIONS (14)
  - Akathisia [Unknown]
  - Apathy [Unknown]
  - Flat affect [Unknown]
  - Intentional self-injury [Unknown]
  - Delusion [Unknown]
  - Dystonia [Unknown]
  - Emotional poverty [Unknown]
  - Hallucination [Unknown]
  - Impulse-control disorder [Unknown]
  - Parkinsonism [Unknown]
  - Schizophrenia [Unknown]
  - Illness [Unknown]
  - Tardive dyskinesia [Unknown]
  - Thinking abnormal [Unknown]
